FAERS Safety Report 20954793 (Version 3)
Quarter: 2022Q2

REPORT INFORMATION
  Report Type: Spontaneous
  Country: CN (occurrence: CN)
  Receive Date: 20220614
  Receipt Date: 20220628
  Transmission Date: 20220720
  Serious: Yes (Other)
  Sender: FDA-Public Use
  Company Number: CN-SANOFI-01124550

PATIENT
  Age: 90 Year
  Sex: Female

DRUGS (3)
  1. LANTUS [Suspect]
     Active Substance: INSULIN GLARGINE
     Indication: Diabetes mellitus
     Dosage: 6 IU, QD
     Route: 058
     Dates: start: 20220317
  2. LANTUS [Suspect]
     Active Substance: INSULIN GLARGINE
     Dosage: 20 IU, QD
     Dates: start: 20220412
  3. NATEGLINIDE [Concomitant]
     Active Substance: NATEGLINIDE

REACTIONS (4)
  - Deafness [Unknown]
  - Back pain [Unknown]
  - Blood glucose increased [Recovering/Resolving]
  - Drug ineffective [Unknown]

NARRATIVE: CASE EVENT DATE: 20220101
